FAERS Safety Report 9575784 (Version 1)
Quarter: 2013Q4

REPORT INFORMATION
  Report Type: Spontaneous
  Country: US (occurrence: US)
  Receive Date: 20131001
  Receipt Date: 20131001
  Transmission Date: 20140711
  Serious: No
  Sender: FDA-Public Use
  Company Number: US-AMGEN-USASP2012059999

PATIENT
  Sex: 0

DRUGS (2)
  1. PROCRIT [Suspect]
     Indication: ANAEMIA
     Dosage: UNK
     Dates: start: 2012
  2. IRON [Concomitant]
     Dosage: UNK
     Route: 042

REACTIONS (1)
  - Transferrin saturation decreased [Not Recovered/Not Resolved]
